FAERS Safety Report 9778406 (Version 2)
Quarter: 2013Q4

REPORT INFORMATION
  Report Type: Spontaneous
  Country: FR (occurrence: FR)
  Receive Date: 20131223
  Receipt Date: 20131223
  Transmission Date: 20140711
  Serious: Yes (Death)
  Sender: FDA-Public Use
  Company Number: FR-B.I. PHARMACEUTICALS,INC./RIDGEFIELD-2013-FF-02516FF

PATIENT
  Sex: Male

DRUGS (6)
  1. PRADAXA [Suspect]
     Route: 048
  2. CANDESARTAN [Concomitant]
  3. SIMVASTATIN [Concomitant]
  4. HEMIGOXINE NATIVELLE 125 MG [Concomitant]
  5. FUROSEMIDE 40 MG [Concomitant]
  6. KALEORID [Concomitant]

REACTIONS (9)
  - Neoplasm malignant [Fatal]
  - Multimorbidity [Fatal]
  - General physical health deterioration [Not Recovered/Not Resolved]
  - Decreased appetite [Not Recovered/Not Resolved]
  - Anaemia [Not Recovered/Not Resolved]
  - Fatigue [Not Recovered/Not Resolved]
  - Malaise [Not Recovered/Not Resolved]
  - Bedridden [Not Recovered/Not Resolved]
  - Decreased interest [Not Recovered/Not Resolved]
